FAERS Safety Report 5020887-1 (Version None)
Quarter: 2006Q2

REPORT INFORMATION
  Report Type: 
  Country: None (occurrence: None)
  Receive Date: 20060608
  Receipt Date: 20060530
  Transmission Date: 20061013
  Serious: Yes (Other)
  Sender: FDA-Public Use
  Company Number: PHMT2006CA01296

PATIENT
  Age: 25 Year
  Sex: Female

DRUGS (2)
  1. DESFERAL [Suspect]
     Route: 058
  2. DESFERAL [Suspect]
     Route: 042

REACTIONS (7)
  - DEEP VEIN THROMBOSIS [None]
  - HAEMOSIDEROSIS [None]
  - HEPATIC FIBROSIS [None]
  - HEPATOCELLULAR DAMAGE [None]
  - INJECTION SITE ERYTHEMA [None]
  - INJECTION SITE PAIN [None]
  - INJECTION SITE REACTION [None]
